FAERS Safety Report 7618241-9 (Version None)
Quarter: 2011Q3

REPORT INFORMATION
  Report Type: 
  Country: None (occurrence: None)
  Receive Date: 20110718
  Receipt Date: 20110627
  Transmission Date: 20111222
  Serious: Yes (Hospitalization)
  Sender: FDA-Public Use
  Company Number: US-GLAXOSMITHKLINE-B0715361A

PATIENT
  Age: 51 Year
  Sex: Female

DRUGS (5)
  1. AVANDIA [Suspect]
     Indication: DIABETES MELLITUS
     Dosage: 8MG PER DAY
     Route: 048
     Dates: start: 20030201, end: 20040701
  2. SINGULAIR [Concomitant]
  3. CLONIDINE [Concomitant]
  4. GLUCOPHAGE [Concomitant]
  5. HYZAAR [Concomitant]

REACTIONS (3)
  - MYOCARDIAL ISCHAEMIA [None]
  - CORONARY ARTERY DISEASE [None]
  - ANGINA UNSTABLE [None]
